FAERS Safety Report 24230854 (Version 2)
Quarter: 2024Q3

REPORT INFORMATION
  Report Type: Other
  Country: DE (occurrence: DE)
  Receive Date: 20240821
  Receipt Date: 20240828
  Transmission Date: 20241017
  Serious: Yes (Life-Threatening, Hospitalization, Other)
  Sender: DENTSPLY
  Company Number: DE-DENTSPLY-2024SCDP000236

PATIENT
  Age: 12 Week
  Sex: Male

DRUGS (1)
  1. LIDOCAINE [Suspect]
     Active Substance: LIDOCAINE
     Indication: Local anaesthesia
     Dosage: UNK

REACTIONS (7)
  - Sinus tachycardia [Recovered/Resolved]
  - Status epilepticus [Recovered/Resolved]
  - Accidental overdose [Recovered/Resolved]
  - Generalised tonic-clonic seizure [Recovered/Resolved]
  - Local anaesthetic systemic toxicity [Recovered/Resolved]
  - Respiratory failure [Recovered/Resolved]
  - Altered state of consciousness [Recovered/Resolved]
